FAERS Safety Report 14349544 (Version 1)
Quarter: 2018Q1

REPORT INFORMATION
  Report Type: Spontaneous
  Country: US (occurrence: US)
  Receive Date: 20180104
  Receipt Date: 20180104
  Transmission Date: 20180509
  Serious: No
  Sender: FDA-Public Use
  Company Number: US-BAYER-2018-000981

PATIENT

DRUGS (1)
  1. CLARITIN [Suspect]
     Active Substance: LORATADINE
     Indication: PRURITUS GENERALISED
     Dosage: 1 DF, UNK
     Dates: start: 20180101

REACTIONS (3)
  - Product use in unapproved indication [Unknown]
  - Drug administration error [Unknown]
  - Off label use [Unknown]
